FAERS Safety Report 17746067 (Version 1)
Quarter: 2020Q2

REPORT INFORMATION
  Report Type: Spontaneous
  Country: FR (occurrence: FR)
  Receive Date: 20200505
  Receipt Date: 20200505
  Transmission Date: 20200714
  Serious: Yes (Life-Threatening)
  Sender: FDA-Public Use
  Company Number: FR-PFIZER INC-2020178091

PATIENT
  Age: 54 Year
  Sex: Male
  Weight: 93 kg

DRUGS (10)
  1. CYTARABINE. [Suspect]
     Active Substance: CYTARABINE
     Indication: AUTOLOGOUS HAEMATOPOIETIC STEM CELL TRANSPLANT
     Dosage: 0.8 G, 1X/DAY
     Route: 042
     Dates: start: 20200307, end: 20200310
  2. TOPALGIC [Concomitant]
     Dosage: UNK
     Route: 048
  3. BACTRIM [Concomitant]
     Active Substance: SULFAMETHOXAZOLE\TRIMETHOPRIM
     Dosage: 3 DF, WEEKLY
     Route: 048
  4. ZELITREX [Concomitant]
     Active Substance: VALACYCLOVIR HYDROCHLORIDE
     Dosage: 1000 MG, 1X/DAY
     Route: 048
  5. CARMUSTINE. [Suspect]
     Active Substance: CARMUSTINE
     Indication: AUTOLOGOUS HAEMATOPOIETIC STEM CELL TRANSPLANT
     Dosage: 600 MG
     Route: 042
     Dates: start: 20200306
  6. ZOPHREN [ONDANSETRON HYDROCHLORIDE] [Concomitant]
     Active Substance: ONDANSETRON
     Dosage: 16 MG, 1X/DAY
     Route: 048
  7. PRIMPERAN [Concomitant]
     Active Substance: METOCLOPRAMIDE HYDROCHLORIDE
     Dosage: UNK
     Route: 048
  8. MELPHALAN. [Suspect]
     Active Substance: MELPHALAN
     Indication: AUTOLOGOUS HAEMATOPOIETIC STEM CELL TRANSPLANT
     Dosage: 280 MG
     Route: 042
     Dates: start: 20200311
  9. EUPANTOL [Concomitant]
     Active Substance: PANTOPRAZOLE SODIUM
     Dosage: 20 MG, 1X/DAY
     Route: 048
  10. ETOPOSIDE. [Suspect]
     Active Substance: ETOPOSIDE
     Indication: AUTOLOGOUS HAEMATOPOIETIC STEM CELL TRANSPLANT
     Dosage: 800 MG, 1X/DAY
     Route: 042

REACTIONS (2)
  - Enteritis [Recovered/Resolved]
  - Bone marrow failure [Recovered/Resolved]

NARRATIVE: CASE EVENT DATE: 20200314
